FAERS Safety Report 4491934-0 (Version None)
Quarter: 2004Q4

REPORT INFORMATION
  Report Type: 
  Country: None (occurrence: None)
  Receive Date: 20041029
  Receipt Date: 20041029
  Transmission Date: 20050328
  Serious: Yes (Hospitalization)
  Sender: FDA-Public Use
  Company Number: None

PATIENT
  Sex: Male
  Weight: 97.2 kg

DRUGS (12)
  1. RITUXIMAB [Suspect]
     Indication: CHRONIC LYMPHOCYTIC LEUKAEMIA
     Dosage: 1000MG   DAY 1 AND 14   INTRAVENOU
     Route: 042
     Dates: start: 20040629, end: 20041019
  2. FLUDARA [Suspect]
     Dosage: SEE IMAGE   DAYS 1,2,3   INTRAVENOU
     Route: 042
     Dates: start: 20040629, end: 20041021
  3. CYTOXAN [Suspect]
  4. ACYCLOVIR [Concomitant]
  5. BACTRIM DS [Concomitant]
  6. VITAMIN E [Concomitant]
  7. COZAAR [Concomitant]
  8. ACETAMINOPHEN [Concomitant]
  9. DIPHENHYDRAMINE [Concomitant]
  10. RITUXAN [Concomitant]
  11. DOLESETRON [Concomitant]
  12. COMPAZINE [Concomitant]

REACTIONS (1)
  - SEPSIS [None]
